FAERS Safety Report 7540909-3 (Version None)
Quarter: 2011Q2

REPORT INFORMATION
  Report Type: 
  Country: None (occurrence: None)
  Receive Date: 20110610
  Receipt Date: 20110601
  Transmission Date: 20111010
  Serious: Yes (Disabling)
  Sender: FDA-Public Use
  Company Number: GB-ASTRAZENECA-2011SE34046

PATIENT
  Age: 64 Year
  Sex: Female

DRUGS (1)
  1. ARIMIDEX [Suspect]
     Route: 048
     Dates: start: 20070101

REACTIONS (5)
  - HOT FLUSH [None]
  - FATIGUE [None]
  - ARTHROPATHY [None]
  - PAIN IN EXTREMITY [None]
  - GAIT DISTURBANCE [None]
